FAERS Safety Report 4311962-5 (Version None)
Quarter: 2004Q1

REPORT INFORMATION
  Report Type: 
  Country: None (occurrence: None)
  Receive Date: 20040303
  Receipt Date: 20040224
  Transmission Date: 20041129
  Serious: Yes (Death)
  Sender: FDA-Public Use
  Company Number: 2004CG00397

PATIENT
  Sex: Female

DRUGS (2)
  1. MARCAINE [Suspect]
     Indication: ANAESTHESIA
     Dates: start: 20040101
  2. MARCAINE [Suspect]
     Indication: POSTOPERATIVE ANALGESIA
     Dates: start: 20040101

REACTIONS (1)
  - DEATH [None]
